FAERS Safety Report 10535746 (Version 1)
Quarter: 2014Q4

REPORT INFORMATION
  Report Type: Spontaneous
  Country: US (occurrence: US)
  Receive Date: 20141022
  Receipt Date: 20141022
  Transmission Date: 20150529
  Serious: No
  Sender: FDA-Public Use
  Company Number: US-RECKITT BENCKISER PHARMACEUTICAL, INC-RB-60759-2013

PATIENT

DRUGS (4)
  1. NICOTINE. [Concomitant]
     Active Substance: NICOTINE
     Indication: NICOTINE DEPENDENCE
     Dosage: THE PATIENT SMOKED 15-18 CIGARETTES/DAY; ROUTE: INHALATION
     Dates: start: 2010
  2. SUBOXONE [Suspect]
     Active Substance: BUPRENORPHINE HYDROCHLORIDE\NALOXONE HYDROCHLORIDE
     Indication: DRUG DEPENDENCE
     Dosage: SUBOXONE FILM;THE PATIENT CUTED THE FILM INTO PIECES AND TOOK THEM THROUOUGHT THE DAY
     Route: 060
     Dates: start: 2010
  3. NICOTINE. [Concomitant]
     Active Substance: NICOTINE
     Dosage: THE PATIENT CURRENTLY SMOKES 20-30 CIGARETTES/DAY; ROUTE: INHALATION
  4. SUBOXONE [Suspect]
     Active Substance: BUPRENORPHINE HYDROCHLORIDE\NALOXONE HYDROCHLORIDE
     Dosage: SUBOXONE FILM;DOSE OF SUBOXON FILM WAS MEDICALLY TAPERED TO 12 MG/DAILY
     Route: 060

REACTIONS (4)
  - Wrong technique in drug usage process [Not Recovered/Not Resolved]
  - Nasal disorder [Not Recovered/Not Resolved]
  - Nicotine dependence [Not Recovered/Not Resolved]
  - Drug withdrawal syndrome [Not Recovered/Not Resolved]

NARRATIVE: CASE EVENT DATE: 2010
